FAERS Safety Report 7242932-5 (Version None)
Quarter: 2011Q1

REPORT INFORMATION
  Report Type: 
  Country: None (occurrence: None)
  Receive Date: 20110125
  Receipt Date: 20110114
  Transmission Date: 20110831
  Serious: Yes (Hospitalization)
  Sender: FDA-Public Use
  Company Number: US-NOVOPROD-321735

PATIENT
  Sex: Male

DRUGS (3)
  1. GLIMEPIRIDE A [Concomitant]
     Indication: DIABETES MELLITUS
  2. NOVOLOG [Suspect]
     Indication: DIABETES MELLITUS
     Dosage: SLIDING SCALE TID
     Dates: start: 20100101
  3. LANTUS [Concomitant]
     Indication: DIABETES MELLITUS
     Dosage: UNK, QD AT NIGHT

REACTIONS (1)
  - HOSPITALISATION [None]
